FAERS Safety Report 19940529 (Version 4)
Quarter: 2024Q1

REPORT INFORMATION
  Report Type: Report from Study
  Country: CD (occurrence: CD)
  Receive Date: 20211011
  Receipt Date: 20240212
  Transmission Date: 20240410
  Serious: Yes (Death, Hospitalization, Other)
  Sender: FDA-Public Use
  Company Number: CD-SA-SAC20211004001491

PATIENT
  Age: 52 Year
  Sex: Male

DRUGS (1)
  1. FEXINIDAZOLE [Suspect]
     Active Substance: FEXINIDAZOLE
     Indication: African trypanosomiasis
     Dosage: 24 DF, BID
     Route: 048
     Dates: start: 20210209, end: 20210218

REACTIONS (2)
  - Completed suicide [Fatal]
  - Asphyxia [Fatal]

NARRATIVE: CASE EVENT DATE: 20210219
